FAERS Safety Report 14620868 (Version 2)
Quarter: 2020Q2

REPORT INFORMATION
  Report Type: Spontaneous
  Country: GB (occurrence: GB)
  Receive Date: 20180309
  Receipt Date: 20200505
  Transmission Date: 20200713
  Serious: Yes (Other)
  Sender: FDA-Public Use
  Company Number: GB-BRISTOL-MYERS SQUIBB COMPANY-BMS-2018-020765

PATIENT
  Age: 73 Year
  Sex: Female

DRUGS (1)
  1. APIXABAN [Suspect]
     Active Substance: APIXABAN
     Indication: CEREBROVASCULAR ACCIDENT PROPHYLAXIS
     Dosage: 5 MG, BID
     Route: 065
     Dates: start: 20171204

REACTIONS (7)
  - Eye pain [Not Recovered/Not Resolved]
  - Gastric ulcer [Unknown]
  - Skin atrophy [Unknown]
  - Skin discolouration [Unknown]
  - Fatigue [Unknown]
  - Intentional product use issue [Unknown]
  - Varices oesophageal [Unknown]
